FAERS Safety Report 16235390 (Version 2)
Quarter: 2021Q1

REPORT INFORMATION
  Report Type: Spontaneous
  Country: US (occurrence: US)
  Receive Date: 20190424
  Receipt Date: 20210218
  Transmission Date: 20210419
  Serious: Yes (Hospitalization, Other)
  Sender: FDA-Public Use
  Company Number: US-ASTRAZENECA-2019SE58255

PATIENT
  Age: 36 Year
  Sex: Male
  Weight: 114.3 kg

DRUGS (46)
  1. MECLIZINE [Concomitant]
     Active Substance: MECLIZINE HYDROCHLORIDE
     Indication: ANTIALLERGIC THERAPY
     Dates: start: 2016
  2. ACETAZOLAMIDE. [Concomitant]
     Active Substance: ACETAZOLAMIDE
  3. PROTONIX [Suspect]
     Active Substance: PANTOPRAZOLE SODIUM
     Indication: GASTROOESOPHAGEAL REFLUX DISEASE
     Route: 065
     Dates: start: 201201, end: 201601
  4. HUMULIN NOS [Concomitant]
     Active Substance: INSULIN HUMAN
     Indication: DIABETES MELLITUS
     Dates: start: 2011
  5. OFLOXACIN. [Concomitant]
     Active Substance: OFLOXACIN
  6. FUROSEMIDE. [Concomitant]
     Active Substance: FUROSEMIDE
     Indication: DIURETIC THERAPY
     Dates: start: 2015, end: 2016
  7. METOLAZONE. [Concomitant]
     Active Substance: METOLAZONE
     Indication: DIURETIC THERAPY
     Dates: start: 2011
  8. FOLIC ACID. [Concomitant]
     Active Substance: FOLIC ACID
     Indication: ANAEMIA
  9. HYDROCODONE [Concomitant]
     Active Substance: HYDROCODONE
  10. METFORMIN [Concomitant]
     Active Substance: METFORMIN HYDROCHLORIDE
  11. VIAGRA [Concomitant]
     Active Substance: SILDENAFIL CITRATE
  12. DUREZOL [Concomitant]
     Active Substance: DIFLUPREDNATE
  13. NEXIUM [Suspect]
     Active Substance: ESOMEPRAZOLE MAGNESIUM
     Indication: GASTROOESOPHAGEAL REFLUX DISEASE
     Dosage: 40.0MG UNKNOWN
     Route: 048
     Dates: start: 2008, end: 201406
  14. PRILOSEC [Suspect]
     Active Substance: OMEPRAZOLE MAGNESIUM
     Indication: GASTROOESOPHAGEAL REFLUX DISEASE
     Route: 048
     Dates: start: 201201, end: 201601
  15. PRILOSEC OTC [Suspect]
     Active Substance: OMEPRAZOLE MAGNESIUM
     Indication: GASTROOESOPHAGEAL REFLUX DISEASE
     Dosage: 20.0MG UNKNOWN
     Route: 048
     Dates: start: 2009, end: 2011
  16. PREVACID [Suspect]
     Active Substance: LANSOPRAZOLE
     Indication: GASTROOESOPHAGEAL REFLUX DISEASE
     Route: 065
     Dates: start: 201201, end: 201601
  17. NEXIUM [Suspect]
     Active Substance: ESOMEPRAZOLE MAGNESIUM
     Indication: GASTROOESOPHAGEAL REFLUX DISEASE
     Route: 048
     Dates: start: 201201, end: 201601
  18. PROTONIX [Suspect]
     Active Substance: PANTOPRAZOLE SODIUM
     Indication: GASTROOESOPHAGEAL REFLUX DISEASE
     Dosage: 40.0MG UNKNOWN
     Route: 065
     Dates: start: 201204
  19. PROTONIX [Suspect]
     Active Substance: PANTOPRAZOLE SODIUM
     Indication: GASTROOESOPHAGEAL REFLUX DISEASE
     Dosage: 40.0MG UNKNOWN
     Route: 065
     Dates: start: 201205
  20. BUMETANIDE. [Concomitant]
     Active Substance: BUMETANIDE
     Indication: DIURETIC THERAPY
     Dates: start: 2011
  21. LABETALOL [Concomitant]
     Active Substance: LABETALOL\LABETALOL HYDROCHLORIDE
     Indication: HYPERTENSION
     Dates: start: 2011
  22. VITAMIN D [Concomitant]
     Active Substance: VITAMIN D NOS
  23. ZETIA [Concomitant]
     Active Substance: EZETIMIBE
  24. SYMLIN [Concomitant]
     Active Substance: PRAMLINTIDE ACETATE
  25. PRILOSEC [Suspect]
     Active Substance: OMEPRAZOLE MAGNESIUM
     Indication: GASTROOESOPHAGEAL REFLUX DISEASE
     Dosage: 40.0MG UNKNOWN
     Route: 048
     Dates: start: 201204
  26. PREVACID [Suspect]
     Active Substance: LANSOPRAZOLE
     Indication: GASTROOESOPHAGEAL REFLUX DISEASE
     Route: 065
     Dates: start: 201201, end: 201601
  27. ATORVASTATIN [Concomitant]
     Active Substance: ATORVASTATIN
     Indication: BLOOD CHOLESTEROL INCREASED
     Dates: start: 2011
  28. HYZAAR [Concomitant]
     Active Substance: HYDROCHLOROTHIAZIDE\LOSARTAN POTASSIUM
  29. HYDROCHLOROTHIAZIDE. [Concomitant]
     Active Substance: HYDROCHLOROTHIAZIDE
  30. NEXIUM [Suspect]
     Active Substance: ESOMEPRAZOLE MAGNESIUM
     Indication: GASTROOESOPHAGEAL REFLUX DISEASE
     Dosage: 40.0MG UNKNOWN
     Route: 048
     Dates: start: 2008, end: 201406
  31. NEXIUM [Suspect]
     Active Substance: ESOMEPRAZOLE MAGNESIUM
     Indication: GASTROOESOPHAGEAL REFLUX DISEASE
     Dosage: 40.0MG UNKNOWN
     Route: 048
     Dates: start: 20160712
  32. PREVACID [Suspect]
     Active Substance: LANSOPRAZOLE
     Indication: GASTROOESOPHAGEAL REFLUX DISEASE
     Dosage: 30.0MG UNKNOWN
     Route: 065
     Dates: start: 201204
  33. SPIRONOLACTONE. [Concomitant]
     Active Substance: SPIRONOLACTONE
  34. LASIX [Concomitant]
     Active Substance: FUROSEMIDE
  35. CRESTOR [Concomitant]
     Active Substance: ROSUVASTATIN CALCIUM
  36. LIPITOR [Concomitant]
     Active Substance: ATORVASTATIN CALCIUM
  37. LEVITRA [Concomitant]
     Active Substance: VARDENAFIL HYDROCHLORIDE
  38. PREDNISOLONE. [Concomitant]
     Active Substance: PREDNISOLONE
  39. CIPROFLOXACIN. [Concomitant]
     Active Substance: CIPROFLOXACIN
  40. LISINOPRIL. [Concomitant]
     Active Substance: LISINOPRIL
     Indication: HYPERTENSION
     Dates: start: 2011
  41. LOSARTAN. [Concomitant]
     Active Substance: LOSARTAN
     Indication: HYPERTENSION
     Dates: start: 2013, end: 2014
  42. LANTUS [Concomitant]
     Active Substance: INSULIN GLARGINE
  43. NIFEDIPINE. [Concomitant]
     Active Substance: NIFEDIPINE
  44. NIFEDIPINE. [Concomitant]
     Active Substance: NIFEDIPINE
  45. PATANOL [Concomitant]
     Active Substance: OLOPATADINE HYDROCHLORIDE
  46. NEVANAC [Concomitant]
     Active Substance: NEPAFENAC

REACTIONS (6)
  - Acute kidney injury [Not Recovered/Not Resolved]
  - Chronic kidney disease [Not Recovered/Not Resolved]
  - Gastrooesophageal reflux disease [Not Recovered/Not Resolved]
  - Metabolic acidosis [Unknown]
  - Depression [Unknown]
  - End stage renal disease [Not Recovered/Not Resolved]

NARRATIVE: CASE EVENT DATE: 2008
